FAERS Safety Report 7691088-3 (Version None)
Quarter: 2011Q3

REPORT INFORMATION
  Report Type: 
  Country: None (occurrence: None)
  Receive Date: 20110818
  Receipt Date: 20110808
  Transmission Date: 20111222
  Serious: Yes (Death, Other)
  Sender: FDA-Public Use
  Company Number: BR-ELI_LILLY_AND_COMPANY-BR201108002908

PATIENT
  Age: 33 Year
  Sex: Male
  Weight: 200 kg

DRUGS (1)
  1. XIGRIS [Suspect]
     Indication: SEPSIS
     Dosage: 24 A?G/KG, EVERY HOUR
     Route: 042

REACTIONS (1)
  - MULTI-ORGAN FAILURE [None]
